FAERS Safety Report 15292532 (Version 1)
Quarter: 2018Q3

REPORT INFORMATION
  Report Type: Spontaneous
  Country: US (occurrence: US)
  Receive Date: 20180818
  Receipt Date: 20180818
  Transmission Date: 20181010
  Serious: No
  Sender: FDA-Public Use
  Company Number: US-TEVA-2018-US-943391

PATIENT
  Sex: Female

DRUGS (2)
  1. DULOXETINE. [Suspect]
     Active Substance: DULOXETINE
     Route: 065
     Dates: start: 201702
  2. DULOXETINE. [Suspect]
     Active Substance: DULOXETINE
     Route: 065
     Dates: start: 201805

REACTIONS (1)
  - Drug effect incomplete [Unknown]
